FAERS Safety Report 17015022 (Version 2)
Quarter: 2019Q4

REPORT INFORMATION
  Report Type: Spontaneous
  Country: US (occurrence: US)
  Receive Date: 20191111
  Receipt Date: 20191119
  Transmission Date: 20200122
  Serious: Yes (Hospitalization, Other)
  Sender: FDA-Public Use
  Company Number: US-CIPLA LTD.-2019US07293

PATIENT

DRUGS (1)
  1. LEVOFLOXACIN. [Suspect]
     Active Substance: LEVOFLOXACIN
     Indication: ABSCESS LIMB
     Dosage: 750 MILLIGRAM, QOD, (EVERY OTHER DAY) ONCE DAILY
     Route: 065

REACTIONS (4)
  - Hyperreflexia [Recovered/Resolved]
  - Incorrect dose administered [Unknown]
  - Myoclonus [Recovered/Resolved]
  - Neurotoxicity [Recovered/Resolved]
